FAERS Safety Report 7090446-8 (Version None)
Quarter: 2010Q4

REPORT INFORMATION
  Report Type: 
  Country: None (occurrence: None)
  Receive Date: 20101012
  Receipt Date: 20100908
  Transmission Date: 20110411
  Serious: No
  Sender: FDA-Public Use
  Company Number: US-001289

PATIENT
  Sex: Male
  Weight: 54.7 kg

DRUGS (1)
  1. KUVAN [Suspect]
     Indication: PHENYLKETONURIA
     Dosage: (1000 MG QD)
     Dates: start: 20080101

REACTIONS (1)
  - ASPARTATE AMINOTRANSFERASE INCREASED [None]
